FAERS Safety Report 26072214 (Version 1)
Quarter: 2025Q4

REPORT INFORMATION
  Report Type: Spontaneous
  Country: US (occurrence: US)
  Receive Date: 20251120
  Receipt Date: 20251120
  Transmission Date: 20260117
  Serious: No
  Sender: MYLAN
  Company Number: US-MYLANLABS-2025M1095842

PATIENT
  Sex: Female

DRUGS (4)
  1. WIXELA INHUB [Suspect]
     Active Substance: FLUTICASONE PROPIONATE\SALMETEROL XINAFOATE
     Indication: Ill-defined disorder
     Dosage: 250 PER 50 MICROGRAM, BID (TWICE DAILY, MORNING AND NIGHT)
     Dates: start: 20251018
  2. WIXELA INHUB [Suspect]
     Active Substance: FLUTICASONE PROPIONATE\SALMETEROL XINAFOATE
     Dosage: 250 PER 50 MICROGRAM, BID (TWICE DAILY, MORNING AND NIGHT)
     Route: 055
     Dates: start: 20251018
  3. WIXELA INHUB [Suspect]
     Active Substance: FLUTICASONE PROPIONATE\SALMETEROL XINAFOATE
     Dosage: 250 PER 50 MICROGRAM, BID (TWICE DAILY, MORNING AND NIGHT)
     Route: 055
     Dates: start: 20251018
  4. WIXELA INHUB [Suspect]
     Active Substance: FLUTICASONE PROPIONATE\SALMETEROL XINAFOATE
     Dosage: 250 PER 50 MICROGRAM, BID (TWICE DAILY, MORNING AND NIGHT)
     Dates: start: 20251018

REACTIONS (3)
  - Inappropriate schedule of product administration [Unknown]
  - Product use in unapproved indication [Unknown]
  - Device malfunction [Unknown]

NARRATIVE: CASE EVENT DATE: 20250101
